FAERS Safety Report 13339275 (Version 1)
Quarter: 2017Q1

REPORT INFORMATION
  Report Type: Spontaneous
  Country: NL (occurrence: NL)
  Receive Date: 20170315
  Receipt Date: 20170315
  Transmission Date: 20170428
  Serious: Yes (Other)
  Sender: FDA-Public Use
  Company Number: NL-MYLANLABS-2017M1014774

PATIENT

DRUGS (1)
  1. CALCITONIN SALMON. [Suspect]
     Active Substance: CALCITONIN SALMON
     Indication: BONE GIANT CELL TUMOUR BENIGN
     Dosage: 200 IU, QD
     Route: 045

REACTIONS (4)
  - Disease progression [Recovering/Resolving]
  - Bone giant cell tumour benign [Recovering/Resolving]
  - Product use issue [Unknown]
  - Drug administered to patient of inappropriate age [Recovered/Resolved]
